FAERS Safety Report 5778141-6 (Version None)
Quarter: 2008Q2

REPORT INFORMATION
  Report Type: 
  Country: None (occurrence: None)
  Receive Date: 20080618
  Receipt Date: 20080618
  Transmission Date: 20081010
  Serious: No
  Sender: FDA-Public Use
  Company Number: None

PATIENT
  Age: 92 Year
  Sex: Female
  Weight: 97.2 kg

DRUGS (17)
  1. DOPAMINE HCL [Suspect]
     Indication: CARDIAC DISORDER
     Dosage: INFILTRATION ONE TIME IV
     Route: 042
     Dates: start: 20080617
  2. ASPIRIN [Concomitant]
  3. LASIX [Concomitant]
  4. FLECAINIDE ACETATE [Concomitant]
  5. NEXIUM [Concomitant]
  6. ATENOLOL [Concomitant]
  7. MICARDIS [Concomitant]
  8. TRAZODONE HCL [Concomitant]
  9. LORAZEPAM [Concomitant]
  10. IMODIUM [Concomitant]
  11. GENTEEL [Concomitant]
  12. OXYCODONE HCL [Concomitant]
  13. FENTANYL TRANSDERMAL SYSTEM [Concomitant]
  14. LIDODERM [Concomitant]
  15. GLYCOLAX [Concomitant]
  16. ZOFRAN [Concomitant]
  17. PLAV [Concomitant]

REACTIONS (2)
  - INJECTION SITE EXTRAVASATION [None]
  - INJECTION SITE PALLOR [None]
